FAERS Safety Report 14332911 (Version 1)
Quarter: 2017Q4

REPORT INFORMATION
  Report Type: Report from Study
  Country: US (occurrence: US)
  Receive Date: 20171228
  Receipt Date: 20171228
  Transmission Date: 20180321
  Serious: Yes (Hospitalization, Other)
  Sender: FDA-Public Use
  Company Number: US-JNJFOC-20170504538

PATIENT
  Age: 59 Year
  Sex: Male

DRUGS (3)
  1. IMBRUVICA [Suspect]
     Active Substance: IBRUTINIB
     Indication: CHRONIC LYMPHOCYTIC LEUKAEMIA
     Route: 048
     Dates: end: 20170613
  2. VORICONAZOLE. [Suspect]
     Active Substance: VORICONAZOLE
     Indication: PNEUMONIA
     Route: 065
     Dates: start: 20170425, end: 2017
  3. IMBRUVICA [Suspect]
     Active Substance: IBRUTINIB
     Indication: CHRONIC LYMPHOCYTIC LEUKAEMIA
     Route: 048
     Dates: start: 20170828

REACTIONS (10)
  - Mycobacterium avium complex infection [Recovered/Resolved]
  - Nausea [Not Recovered/Not Resolved]
  - Aspergillus infection [Recovered/Resolved]
  - Inappropriate schedule of drug administration [Unknown]
  - Dyspnoea [Unknown]
  - Adverse drug reaction [Unknown]
  - Thrombophlebitis [Unknown]
  - Pneumonia klebsiella [Recovered/Resolved]
  - Flatulence [Not Recovered/Not Resolved]
  - Malaise [Not Recovered/Not Resolved]

NARRATIVE: CASE EVENT DATE: 2017
